FAERS Safety Report 6327905-9 (Version None)
Quarter: 2009Q3

REPORT INFORMATION
  Report Type: 
  Country: None (occurrence: None)
  Receive Date: 20090825
  Receipt Date: 20080724
  Transmission Date: 20100115
  Serious: No
  Sender: FDA-Public Use
  Company Number: US-ABBOTT-08P-163-0466137-00

PATIENT
  Sex: Male
  Weight: 74.91 kg

DRUGS (2)
  1. SYNTHROID [Suspect]
     Indication: BLOOD THYROID STIMULATING HORMONE ABNORMAL
     Dates: start: 20080515, end: 20080717
  2. OMEPRAZOLE MAGNESIUM [Concomitant]
     Indication: GASTROOESOPHAGEAL REFLUX DISEASE

REACTIONS (6)
  - DIARRHOEA [None]
  - FAECES DISCOLOURED [None]
  - HYPERHIDROSIS [None]
  - INSOMNIA [None]
  - POLLAKIURIA [None]
  - TREMOR [None]
